FAERS Safety Report 25812966 (Version 2)
Quarter: 2025Q4

REPORT INFORMATION
  Report Type: Spontaneous
  Country: US (occurrence: US)
  Receive Date: 20250917
  Receipt Date: 20251127
  Transmission Date: 20260118
  Serious: No
  Sender: SANOFI AVENTIS
  Company Number: US-SA-2025SA276525

PATIENT
  Age: 51 Year
  Sex: Female

DRUGS (4)
  1. DUPIXENT [Suspect]
     Active Substance: DUPILUMAB
     Indication: Dermatitis atopic
     Dosage: 600 MG, 1X
     Route: 058
     Dates: start: 202507, end: 202507
  2. DUPIXENT [Suspect]
     Active Substance: DUPILUMAB
     Indication: Urticaria chronic
     Dosage: 300 MG, QOW
     Route: 058
     Dates: start: 2025
  3. DUPIXENT [Suspect]
     Active Substance: DUPILUMAB
     Dosage: UNK UNK, QOW
     Dates: start: 2025
  4. ESTROGENS [Suspect]
     Active Substance: ESTROGENS
     Dosage: UNK

REACTIONS (6)
  - Sensitive skin [Not Recovered/Not Resolved]
  - Rash macular [Not Recovered/Not Resolved]
  - Dermatitis atopic [Unknown]
  - Product dose omission in error [Unknown]
  - Pruritus [Recovered/Resolved]
  - Product use in unapproved indication [Unknown]

NARRATIVE: CASE EVENT DATE: 20250101
